FAERS Safety Report 24309701 (Version 3)
Quarter: 2024Q3

REPORT INFORMATION
  Report Type: Spontaneous
  Country: SE (occurrence: SE)
  Receive Date: 20240912
  Receipt Date: 20240920
  Transmission Date: 20241017
  Serious: Yes (Other)
  Sender: SANDOZ
  Company Number: SE-MYLANLABS-2020M1099328

PATIENT
  Age: 65 Year
  Sex: Male

DRUGS (4)
  1. EVEROLIMUS [Suspect]
     Active Substance: EVEROLIMUS
     Indication: Prophylaxis against transplant rejection
     Dosage: 10 MG, BID
     Route: 065
  2. EVEROLIMUS [Suspect]
     Active Substance: EVEROLIMUS
     Dosage: 10 MILLIGRAM, BID (10 MG, 2X/DAY)
     Route: 065
  3. MYCOPHENOLATE MOFETIL [Suspect]
     Active Substance: MYCOPHENOLATE MOFETIL
     Indication: Product used for unknown indication
     Dosage: UNK
     Route: 065
  4. PREDNISOLONE [Suspect]
     Active Substance: PREDNISOLONE
     Indication: Product used for unknown indication
     Dosage: 10 MG, QD
     Route: 065

REACTIONS (3)
  - Exposed bone in jaw [Unknown]
  - Osteonecrosis of jaw [Unknown]
  - Pain in jaw [Unknown]
